FAERS Safety Report 20044796 (Version 5)
Quarter: 2021Q4

REPORT INFORMATION
  Report Type: Spontaneous
  Country: LT (occurrence: LT)
  Receive Date: 20211108
  Receipt Date: 20211211
  Transmission Date: 20220303
  Serious: Yes (Other)
  Sender: FDA-Public Use
  Company Number: LT-NOVARTISPH-NVSC2021LT249294

PATIENT
  Age: 56 Year
  Sex: Female

DRUGS (3)
  1. FLUOXETINE [Suspect]
     Active Substance: FLUOXETINE HYDROCHLORIDE
     Indication: Generalised anxiety disorder
     Dosage: UNK
     Route: 065
  2. QUETIAPINE FUMARATE [Suspect]
     Active Substance: QUETIAPINE FUMARATE
     Indication: Generalised anxiety disorder
     Dosage: UNK
     Route: 048
  3. CLONAZEPAM [Concomitant]
     Active Substance: CLONAZEPAM
     Indication: Product used for unknown indication
     Dosage: UNK
     Route: 065

REACTIONS (7)
  - Abnormal dreams [Recovering/Resolving]
  - Rapid eye movement sleep behaviour disorder [Recovering/Resolving]
  - Parasomnia [Recovering/Resolving]
  - Rapid eye movements sleep abnormal [Recovering/Resolving]
  - Abnormal sleep-related event [Unknown]
  - Sleep talking [Unknown]
  - Somnambulism [Unknown]
